FAERS Safety Report 5042903-3 (Version None)
Quarter: 2006Q3

REPORT INFORMATION
  Report Type: 
  Country: None (occurrence: None)
  Receive Date: 20060705
  Receipt Date: 20060530
  Transmission Date: 20061208
  Serious: Yes (Hospitalization)
  Sender: FDA-Public Use
  Company Number: FR-AVENTIS-200611944FR

PATIENT
  Age: 55 Year
  Sex: Male

DRUGS (4)
  1. KETEK [Suspect]
     Indication: BRONCHITIS
     Route: 048
     Dates: start: 20060315, end: 20060320
  2. AMOXICILLIN [Suspect]
     Indication: BRONCHITIS
     Route: 048
     Dates: start: 20060320, end: 20060327
  3. PYOSTACINE [Concomitant]
     Route: 048
     Dates: start: 20060329, end: 20060409
  4. CIFLOX [Concomitant]
     Route: 048
     Dates: start: 20060329, end: 20060403

REACTIONS (9)
  - ASPARTATE AMINOTRANSFERASE INCREASED [None]
  - CHEST X-RAY ABNORMAL [None]
  - CHLAMYDIAL INFECTION [None]
  - CYTOLYTIC HEPATITIS [None]
  - DRUG INEFFECTIVE [None]
  - HEPATOCELLULAR DAMAGE [None]
  - PALLOR [None]
  - PLEUROPERICARDITIS [None]
  - PYREXIA [None]
